FAERS Safety Report 16662552 (Version 2)
Quarter: 2020Q1

REPORT INFORMATION
  Report Type: Report from Study
  Country: US (occurrence: US)
  Receive Date: 20190802
  Receipt Date: 20200129
  Transmission Date: 20200409
  Serious: No
  Sender: FDA-Public Use
  Company Number: US-EXELIXIS-CABO-19018545

PATIENT
  Age: 68 Year
  Sex: Female

DRUGS (2)
  1. CABOMETYX [Suspect]
     Active Substance: CABOZANTINIB S-MALATE
     Indication: DUCTAL ADENOCARCINOMA OF PANCREAS
     Dosage: 40 MG, UNK
     Dates: start: 20190109
  2. CABOMETYX [Suspect]
     Active Substance: CABOZANTINIB S-MALATE
     Dosage: 60 MG, UNK
     Dates: start: 20190205

REACTIONS (8)
  - Procedural pain [Unknown]
  - Off label use [Unknown]
  - Malignant neoplasm progression [Unknown]
  - Ageusia [Not Recovered/Not Resolved]
  - Blood pressure increased [Unknown]
  - Diarrhoea [Unknown]
  - Insomnia [Unknown]
  - Fatigue [Unknown]

NARRATIVE: CASE EVENT DATE: 201901
